FAERS Safety Report 4389918-6 (Version None)
Quarter: 2004Q2

REPORT INFORMATION
  Report Type: 
  Country: None (occurrence: None)
  Receive Date: 20040630
  Receipt Date: 20040617
  Transmission Date: 20050107
  Serious: Yes (Hospitalization, Other)
  Sender: FDA-Public Use
  Company Number: 2004041540

PATIENT
  Age: 75 Year
  Sex: Female

DRUGS (5)
  1. PHENYTOIN [Suspect]
     Indication: EPILEPSY
     Dosage: 300 MG (300 MG, 1 IN D), ORAL
     Route: 048
  2. SULPIRIDE (SULPIRIDE) [Concomitant]
  3. BACLOFEN [Concomitant]
  4. SERTRALINE (SERTRALINE) [Concomitant]
  5. FRUMIL (AMILORIDE HYDROCHLORIDE, FUROSEMIDE) [Concomitant]

REACTIONS (2)
  - DELIRIUM [None]
  - DRUG LEVEL INCREASED [None]
